FAERS Safety Report 12188603 (Version 1)
Quarter: 2016Q1

REPORT INFORMATION
  Report Type: Spontaneous
  Country: US (occurrence: US)
  Receive Date: 20160317
  Receipt Date: 20160317
  Transmission Date: 20160526
  Serious: No
  Sender: FDA-Public Use
  Company Number: US-009507513-1603USA002525

PATIENT
  Age: 22 Year
  Sex: Female
  Weight: 63.49 kg

DRUGS (1)
  1. NEXPLANON [Suspect]
     Active Substance: ETONOGESTREL
     Indication: CONTRACEPTION
     Dosage: 1 ROD FOR 3 YEARS, INSERTED IN THE LEFT ARM
     Route: 059
     Dates: start: 20140522

REACTIONS (2)
  - Menstruation irregular [Unknown]
  - Device dislocation [Unknown]

NARRATIVE: CASE EVENT DATE: 201407
